FAERS Safety Report 15981764 (Version 1)
Quarter: 2019Q1

REPORT INFORMATION
  Report Type: Spontaneous
  Country: US (occurrence: US)
  Receive Date: 20190219
  Receipt Date: 20190219
  Transmission Date: 20190418
  Serious: Yes (Life-Threatening, Hospitalization, Disabling)
  Sender: FDA-Public Use
  Company Number: None

PATIENT
  Age: 60 Year
  Sex: Male
  Weight: 94.5 kg

DRUGS (4)
  1. RAMIPRIL 5MG, [Concomitant]
  2. AMLODIPIN 1A 5MG, [Concomitant]
  3. URAPIDIL STRAGEN 30MG [Concomitant]
  4. LIPITOR [Suspect]
     Active Substance: ATORVASTATIN CALCIUM
     Indication: BLOOD CHOLESTEROL
     Dosage: ?          QUANTITY:1 TABLET(S);?
     Route: 048
     Dates: start: 20181112, end: 20190118

REACTIONS (6)
  - Chromaturia [None]
  - Influenza like illness [None]
  - Renal failure [None]
  - Dialysis [None]
  - Diarrhoea [None]
  - Nausea [None]

NARRATIVE: CASE EVENT DATE: 20190118
